FAERS Safety Report 9976615 (Version 1)
Quarter: 2014Q1

REPORT INFORMATION
  Report Type: Report from Study
  Country: US (occurrence: US)
  Receive Date: 20140306
  Receipt Date: 20140306
  Transmission Date: 20141002
  Serious: No
  Sender: FDA-Public Use
  Company Number: US-ABBVIE-13P-163-1166754-00

PATIENT
  Sex: Female
  Weight: 46.76 kg

DRUGS (3)
  1. HUMIRA [Suspect]
     Indication: CROHN^S DISEASE
     Dates: start: 201305
  2. SYNTHROID [Concomitant]
     Indication: HYPOTHYROIDISM
  3. VITAMIN B12 [Concomitant]
     Indication: VITAMIN B12 DEFICIENCY
     Route: 050

REACTIONS (2)
  - Oropharyngeal pain [Not Recovered/Not Resolved]
  - Arthralgia [Not Recovered/Not Resolved]
